FAERS Safety Report 4938516-1 (Version None)
Quarter: 2006Q1

REPORT INFORMATION
  Report Type: 
  Country: None (occurrence: None)
  Receive Date: 20060302
  Receipt Date: 20060220
  Transmission Date: 20060701
  Serious: Yes (Hospitalization, Disabling, Other)
  Sender: FDA-Public Use
  Company Number: 2006027514

PATIENT
  Age: 85 Year
  Sex: Male

DRUGS (9)
  1. PIROXICAM [Suspect]
     Indication: ILL-DEFINED DISORDER
     Dosage: 20 MG (20 MG, 1 IN 1 D), ORAL
     Route: 048
     Dates: start: 20041101
  2. ASPIRIN [Suspect]
     Indication: ILL-DEFINED DISORDER
     Dosage: 75 MG (75 MG, 1 IN 1 D), ORAL
     Route: 048
  3. DIPYRIDAMOLE [Suspect]
     Indication: ILL-DEFINED DISORDER
     Dosage: 400 MG (200 MG, 2 IN 1 D), ORAL
     Route: 048
  4. HYDROXOCOBALAMIN (HYDROXOCOBALAMIN) [Concomitant]
  5. LOPERAMIDE HCL [Concomitant]
  6. FUROSEMIDE [Concomitant]
  7. GLYCERYL TRINITRATE (GLYCERYL TRINITRATE) [Concomitant]
  8. DILTIAZEM [Concomitant]
  9. CO-CARELDOPA (CARBIDOPA, LEVODOPA) [Concomitant]

REACTIONS (1)
  - VITREOUS HAEMORRHAGE [None]
